FAERS Safety Report 9909118 (Version 1)
Quarter: 2014Q1

REPORT INFORMATION
  Report Type: Spontaneous
  Country: US (occurrence: US)
  Receive Date: 20140219
  Receipt Date: 20140219
  Transmission Date: 20141002
  Serious: Yes (Other)
  Sender: FDA-Public Use
  Company Number: US-PFIZER INC-2014044445

PATIENT
  Sex: Female

DRUGS (3)
  1. ADVIL COLD AND SINUS [Suspect]
     Indication: HYPERSENSITIVITY
     Dosage: UNK
  2. ADVIL COLD AND SINUS [Suspect]
     Indication: SINUS CONGESTION
  3. ADVIL COLD AND SINUS [Suspect]
     Indication: SINUS DISORDER

REACTIONS (2)
  - Dependence [Unknown]
  - Off label use [Unknown]
